FAERS Safety Report 4308081-0 (Version None)
Quarter: 2004Q1

REPORT INFORMATION
  Report Type: 
  Country: None (occurrence: None)
  Receive Date: 20040301
  Receipt Date: 20030501
  Transmission Date: 20041129
  Serious: No
  Sender: FDA-Public Use
  Company Number: US-BRISTOL-MYERS SQUIBB COMPANY-12260402

PATIENT
  Age: 64 Year
  Sex: Female
  Weight: 84 kg

DRUGS (9)
  1. GLUCOPHAGE [Suspect]
     Indication: DIABETES MELLITUS
     Dosage: DURATION OF THERAPY:  ^6-7 YEARS^
     Route: 048
  2. AVANDIA [Concomitant]
  3. CYCLOBENZAPRINE [Concomitant]
  4. POTASSIUM CHLORIDE [Concomitant]
  5. MAVIK [Concomitant]
  6. LASIX [Concomitant]
  7. NORVASC [Concomitant]
  8. ZOCOR [Concomitant]
  9. MINOCYCLINE HCL [Concomitant]

REACTIONS (1)
  - NAUSEA [None]
